FAERS Safety Report 14384833 (Version 3)
Quarter: 2019Q2

REPORT INFORMATION
  Report Type: Spontaneous
  Country: JP (occurrence: JP)
  Receive Date: 20180115
  Receipt Date: 20190405
  Transmission Date: 20190711
  Serious: Yes (Other)
  Sender: FDA-Public Use
  Company Number: JP-JNJFOC-20180115147

PATIENT
  Age: 74 Year
  Sex: Male

DRUGS (16)
  1. STELARA [Suspect]
     Active Substance: USTEKINUMAB
     Indication: PSORIASIS
     Route: 058
     Dates: start: 201705, end: 201705
  2. BETAMETHASONE. [Concomitant]
     Active Substance: BETAMETHASONE
     Route: 048
     Dates: start: 201610
  3. PREDONINE [Concomitant]
     Active Substance: PREDNISOLONE
     Indication: PSORIASIS
     Route: 048
     Dates: start: 201712
  4. PREDONINE [Concomitant]
     Active Substance: PREDNISOLONE
     Indication: PSORIASIS
     Route: 048
     Dates: start: 2015
  5. PREDONINE [Concomitant]
     Active Substance: PREDNISOLONE
     Indication: PSORIASIS
     Route: 048
     Dates: start: 201611
  6. BONALON [Concomitant]
     Active Substance: ALENDRONATE SODIUM
     Route: 048
  7. PREDONINE [Concomitant]
     Active Substance: PREDNISOLONE
     Indication: PSORIASIS
     Route: 048
  8. CALCIPOTRIENE AND BETAMETHASONE DIPROPIONATE [Concomitant]
     Active Substance: BETAMETHASONE DIPROPIONATE\CALCIPOTRIENE
     Indication: PSORIASIS
     Route: 065
  9. STELARA [Suspect]
     Active Substance: USTEKINUMAB
     Indication: PSORIASIS
     Route: 058
     Dates: start: 201610, end: 201610
  10. STELARA [Suspect]
     Active Substance: USTEKINUMAB
     Indication: PSORIASIS
     Route: 058
     Dates: start: 201611, end: 201611
  11. STELARA [Suspect]
     Active Substance: USTEKINUMAB
     Indication: PSORIASIS
     Route: 058
     Dates: start: 201711, end: 201711
  12. BETAMETHASONE DIPROPIONATE. [Concomitant]
     Active Substance: BETAMETHASONE DIPROPIONATE
     Indication: PSORIASIS
     Route: 061
  13. GASTER [Concomitant]
     Active Substance: FAMOTIDINE
     Route: 048
  14. NICOTINAMIDE [Concomitant]
     Active Substance: NIACINAMIDE
     Route: 048
  15. DOVOBET [Concomitant]
     Active Substance: BETAMETHASONE\CALCIPOTRIENE
     Route: 061
  16. PREDONINE [Concomitant]
     Active Substance: PREDNISOLONE
     Indication: PSORIASIS
     Route: 048
     Dates: start: 201705

REACTIONS (2)
  - Pancreatic carcinoma [Unknown]
  - Renal cancer [Unknown]

NARRATIVE: CASE EVENT DATE: 201712
